FAERS Safety Report 14447851 (Version 2)
Quarter: 2018Q2

REPORT INFORMATION
  Report Type: Spontaneous
  Country: IT (occurrence: IT)
  Receive Date: 20180126
  Receipt Date: 20180412
  Transmission Date: 20180711
  Serious: Yes (Other)
  Sender: FDA-Public Use
  Company Number: PHHY2018IT010142

PATIENT
  Age: 69 Year
  Sex: Female

DRUGS (4)
  1. SOTALOL. [Suspect]
     Active Substance: SOTALOL
     Indication: ATRIAL FIBRILLATION
     Dosage: UNK
     Route: 065
  2. FLECAINIDE [Suspect]
     Active Substance: FLECAINIDE
     Indication: ATRIAL FIBRILLATION
     Dosage: UNK
     Route: 065
  3. PROPAFENONE. [Suspect]
     Active Substance: PROPAFENONE
     Indication: ATRIAL FIBRILLATION
     Dosage: UNK
     Route: 065
  4. AMIODARONE [Suspect]
     Active Substance: AMIODARONE
     Indication: ATRIAL FIBRILLATION
     Dosage: UNK
     Route: 065

REACTIONS (2)
  - Hyperthyroidism [Unknown]
  - Drug ineffective [Unknown]
